FAERS Safety Report 5788626-4 (Version None)
Quarter: 2008Q2

REPORT INFORMATION
  Report Type: 
  Country: None (occurrence: None)
  Receive Date: 20080625
  Receipt Date: 20080625
  Transmission Date: 20081010
  Serious: No
  Sender: FDA-Public Use
  Company Number: None

PATIENT
  Age: 26 Year
  Sex: Female
  Weight: 54.4316 kg

DRUGS (6)
  1. FLUOXETINE [Suspect]
     Indication: MAJOR DEPRESSION
     Dosage: 40 MG PO QD
     Route: 048
     Dates: start: 20080607, end: 20080611
  2. PAXIL [Concomitant]
  3. NEURONTIN [Concomitant]
  4. KLONOPIN [Concomitant]
  5. LTIHIUM CARBONATE [Concomitant]
  6. NARCO [Concomitant]

REACTIONS (3)
  - AGGRESSION [None]
  - AGITATION [None]
  - SUICIDAL IDEATION [None]
